FAERS Safety Report 10076896 (Version 1)
Quarter: 2014Q2

REPORT INFORMATION
  Report Type: Spontaneous
  Country: US (occurrence: US)
  Receive Date: 20140414
  Receipt Date: 20140414
  Transmission Date: 20141212
  Serious: Yes (Other)
  Sender: FDA-Public Use
  Company Number: US-GLAXOSMITHKLINE-A1068463A

PATIENT
  Age: 56 Year
  Sex: Female

DRUGS (4)
  1. ADVAIR [Suspect]
     Indication: ASTHMA
     Dosage: 1PUFF TWICE PER DAY
     Route: 055
     Dates: start: 200905
  2. STOOL SOFTENER [Concomitant]
  3. ATENOLOL [Concomitant]
  4. PREDNISONE [Concomitant]

REACTIONS (4)
  - Nasal candidiasis [Recovered/Resolved]
  - Oral candidiasis [Recovered/Resolved]
  - Dysphonia [Recovered/Resolved]
  - Rhinorrhoea [Recovered/Resolved]
